FAERS Safety Report 4316694-5 (Version None)
Quarter: 2004Q1

REPORT INFORMATION
  Report Type: 
  Country: None (occurrence: None)
  Receive Date: 20040311
  Receipt Date: 20040303
  Transmission Date: 20041129
  Serious: Yes (Other)
  Sender: FDA-Public Use
  Company Number: 2004198976US

PATIENT
  Age: 20 Year
  Sex: Female

DRUGS (1)
  1. DEPO-PROVERA [Suspect]
     Indication: CONTRACEPTION
     Dosage: SINGLE INJECTION
     Route: 030
     Dates: start: 20031121, end: 20031121

REACTIONS (6)
  - ABORTION INDUCED [None]
  - BLIGHTED OVUM [None]
  - COMPLICATIONS OF MATERNAL EXPOSURE TO THERAPEUTIC DRUGS [None]
  - MATERNAL DRUGS AFFECTING FOETUS [None]
  - PREGNANCY WITH INJECTABLE CONTRACEPTIVE [None]
  - UNINTENDED PREGNANCY [None]
